FAERS Safety Report 18776479 (Version 1)
Quarter: 2021Q1

REPORT INFORMATION
  Report Type: Spontaneous
  Country: US (occurrence: US)
  Receive Date: 20210122
  Receipt Date: 20210122
  Transmission Date: 20210419
  Serious: Yes (Hospitalization, Other)
  Sender: FDA-Public Use
  Company Number: US-SA-2021SA017616

PATIENT
  Age: 78 Year
  Sex: Male

DRUGS (18)
  1. PLAVIX [Suspect]
     Active Substance: CLOPIDOGREL BISULFATE
     Dosage: 75 MG, QD
     Route: 048
     Dates: start: 20201103, end: 20201103
  2. ASPIRINE [Suspect]
     Active Substance: ASPIRIN
     Dosage: 100 MG
     Route: 048
     Dates: start: 20201105, end: 20201201
  3. ASPIRINE [Suspect]
     Active Substance: ASPIRIN
     Dosage: 100 MG
     Route: 048
     Dates: start: 20201202, end: 20201202
  4. ASPIRINE [Suspect]
     Active Substance: ASPIRIN
     Dosage: UNK
     Route: 048
     Dates: start: 20201204, end: 20201204
  5. PLAVIX [Suspect]
     Active Substance: CLOPIDOGREL BISULFATE
     Dosage: 75 MG, QD
     Route: 048
     Dates: start: 20201016, end: 20201016
  6. ASPIRINE [Suspect]
     Active Substance: ASPIRIN
     Dosage: 100 MG
     Route: 048
     Dates: start: 20201017, end: 20201102
  7. LATANOPROST. [Concomitant]
     Active Substance: LATANOPROST
     Dosage: 0.005% OPHTHALMIC SOLUTION
     Route: 047
  8. ASPIRINE [Suspect]
     Active Substance: ASPIRIN
     Dosage: 100 MG
     Route: 048
     Dates: start: 20201203, end: 20201203
  9. FENTANYL. [Suspect]
     Active Substance: FENTANYL
     Dosage: 100 UG
     Dates: start: 20210107, end: 20210107
  10. PLAVIX [Suspect]
     Active Substance: CLOPIDOGREL BISULFATE
     Dosage: 75 MG, QD
     Route: 048
     Dates: start: 20201017, end: 20201102
  11. ROSUVASTATIN. [Suspect]
     Active Substance: ROSUVASTATIN
     Dosage: 20 MG
     Dates: start: 20201204
  12. ASPIRINE [Suspect]
     Active Substance: ASPIRIN
     Dosage: 100 MG
     Route: 048
     Dates: start: 20201104, end: 20201104
  13. GLYCERYL TRINITRATE [Suspect]
     Active Substance: NITROGLYCERIN
     Dosage: 40 UG
     Dates: start: 20210107, end: 20210107
  14. ASPIRINE [Suspect]
     Active Substance: ASPIRIN
     Dosage: 100 MG
     Route: 048
     Dates: start: 20201015
  15. IRBESARTAN. [Concomitant]
     Active Substance: IRBESARTAN
  16. PLAVIX [Suspect]
     Active Substance: CLOPIDOGREL BISULFATE
     Dosage: 75 MG, QD
     Route: 048
     Dates: start: 20201104, end: 20201104
  17. ASPIRINE [Suspect]
     Active Substance: ASPIRIN
     Dosage: 100 MG
     Route: 048
     Dates: start: 20201016, end: 20201016
  18. ASPIRINE [Suspect]
     Active Substance: ASPIRIN
     Dosage: 100 MG
     Route: 048
     Dates: start: 20201103, end: 20201103

REACTIONS (1)
  - Carotid revascularisation [Recovered/Resolved]

NARRATIVE: CASE EVENT DATE: 20210107
